FAERS Safety Report 21494878 (Version 1)
Quarter: 2022Q4

REPORT INFORMATION
  Report Type: Spontaneous
  Country: US (occurrence: US)
  Receive Date: 20221022
  Receipt Date: 20221022
  Transmission Date: 20230113
  Serious: No
  Sender: FDA-Public Use
  Company Number: US-SA-SAC20221018001278

PATIENT
  Age: 40 Year
  Sex: Female
  Weight: 120.38 kg

DRUGS (1)
  1. DUPIXENT [Suspect]
     Active Substance: DUPILUMAB
     Indication: Eosinophilic oesophagitis
     Dosage: 300 MG, QW
     Route: 058
     Dates: start: 20221005

REACTIONS (2)
  - Lip swelling [Recovered/Resolved]
  - Retinal drusen [Recovered/Resolved]

NARRATIVE: CASE EVENT DATE: 20221007
